FAERS Safety Report 7988802 (Version 2)
Quarter: 2012Q4

REPORT INFORMATION
  Report Type: 
  Country: CA (occurrence: CA)
  Receive Date: 20110613
  Receipt Date: 20121106
  Transmission Date: 20130627
  Serious: Yes (Other)
  Sender: FDA-Public Use
  Company Number: PHHO2005CA06734

PATIENT
  Sex: Female

DRUGS (5)
  1. SANDOSTATIN LAR [Suspect]
     Dosage: 20 mg, once a month
     Dates: start: 20041103
  2. SANDOSTATIN LAR [Suspect]
     Dosage: 30 mg every four weeks
  3. GABAPENTIN [Concomitant]
  4. CORTISONE [Concomitant]
  5. THYROXINE [Concomitant]

REACTIONS (41)
  - Cataract [Unknown]
  - Blood pressure diastolic decreased [Unknown]
  - Intraocular pressure increased [Unknown]
  - Diplopia [Unknown]
  - Eyelid disorder [Unknown]
  - Erythema of eyelid [Recovering/Resolving]
  - Eyelid oedema [Recovered/Resolved]
  - Hordeolum [Unknown]
  - Headache [Recovering/Resolving]
  - Fall [Unknown]
  - Contusion [Unknown]
  - Sinus disorder [Unknown]
  - Influenza like illness [Unknown]
  - Insulin-like growth factor increased [Not Recovered/Not Resolved]
  - Jaw disorder [Unknown]
  - Musculoskeletal discomfort [Unknown]
  - Musculoskeletal stiffness [Unknown]
  - Neck pain [Not Recovered/Not Resolved]
  - Nervousness [Unknown]
  - Seasonal allergy [Unknown]
  - Flushing [Unknown]
  - Vision blurred [Unknown]
  - Pain in jaw [Unknown]
  - Lacrimation increased [Unknown]
  - Poor quality sleep [Unknown]
  - Eye pain [Unknown]
  - Ecchymosis [Unknown]
  - Intraocular pressure test [Unknown]
  - Sinus congestion [Unknown]
  - Sinus headache [Unknown]
  - Blood pressure decreased [Unknown]
  - Hyperhidrosis [Unknown]
  - Decreased appetite [Unknown]
  - Nasopharyngitis [Unknown]
  - Ocular hyperaemia [Recovering/Resolving]
  - Eye infection bacterial [Not Recovered/Not Resolved]
  - Dizziness [Unknown]
  - Asthenia [Unknown]
  - Fatigue [Unknown]
  - Diarrhoea [Unknown]
  - Condition aggravated [Unknown]
